FAERS Safety Report 7019299-0 (Version None)
Quarter: 2010Q3

REPORT INFORMATION
  Report Type: 
  Country: None (occurrence: None)
  Receive Date: 20100923
  Receipt Date: 20100909
  Transmission Date: 20110219
  Serious: Yes (Hospitalization)
  Sender: FDA-Public Use
  Company Number: A-NJ2010-39540

PATIENT
  Age: 84 Year
  Sex: Female

DRUGS (5)
  1. TRACLEER [Suspect]
     Indication: PULMONARY ARTERIAL HYPERTENSION
     Dosage: MG, ORAL; 62 MG, BID, ORAL
     Route: 048
     Dates: start: 20080619, end: 20091001
  2. TRACLEER [Suspect]
     Indication: PULMONARY ARTERIAL HYPERTENSION
     Dosage: MG, ORAL; 62 MG, BID, ORAL
     Route: 048
     Dates: start: 20091001
  3. REVATIO [Concomitant]
  4. CALCIUM CHANNEL BLOCKERS [Concomitant]
  5. ASPIRIN [Concomitant]

REACTIONS (5)
  - CHRONIC OBSTRUCTIVE PULMONARY DISEASE [None]
  - CONDITION AGGRAVATED [None]
  - DISEASE PROGRESSION [None]
  - PULMONARY ARTERIAL HYPERTENSION [None]
  - RESPIRATORY FAILURE [None]
